FAERS Safety Report 16119112 (Version 2)
Quarter: 2019Q4

REPORT INFORMATION
  Report Type: Spontaneous
  Country: FR (occurrence: FR)
  Receive Date: 20190326
  Receipt Date: 20191220
  Transmission Date: 20200122
  Serious: Yes (Hospitalization, Other)
  Sender: FDA-Public Use
  Company Number: FR-PFIZER INC-2019123839

PATIENT
  Age: 1 Year
  Sex: Female
  Weight: 10 kg

DRUGS (5)
  1. VINCRISTINE SULFATE. [Suspect]
     Active Substance: VINCRISTINE SULFATE
     Indication: RHABDOMYOSARCOMA
     Dosage: 2.1 MG, CYCLIC (2MG/2ML)
     Route: 042
     Dates: start: 20180629, end: 20180713
  2. MESNA EG [Suspect]
     Active Substance: MESNA
     Indication: PROPHYLAXIS
     Dosage: 1656 MG, 1X/DAY
     Route: 042
     Dates: start: 20180629, end: 20180630
  3. POLYIONIQUE FORMULE 1A G5 [Concomitant]
     Active Substance: DEXTROSE\POTASSIUM CHLORIDE\SODIUM CHLORIDE
     Dosage: 1380 ML, 1X/DAY
     Route: 041
     Dates: start: 20180629, end: 20180630
  4. HOLOXAN [Suspect]
     Active Substance: IFOSFAMIDE
     Indication: RHABDOMYOSARCOMA
     Dosage: 1400 MG, 1X/DAY
     Route: 041
     Dates: start: 20180629, end: 20180630
  5. COSMEGEN [Suspect]
     Active Substance: DACTINOMYCIN
     Indication: RHABDOMYOSARCOMA
     Dosage: 700 UG, 1X/DAY
     Route: 041
     Dates: start: 20180629, end: 20180629

REACTIONS (1)
  - Febrile bone marrow aplasia [Recovered/Resolved]

NARRATIVE: CASE EVENT DATE: 20180706
